FAERS Safety Report 6694809-1 (Version None)
Quarter: 2010Q2

REPORT INFORMATION
  Report Type: 
  Country: None (occurrence: None)
  Receive Date: 20100420
  Receipt Date: 20100412
  Transmission Date: 20101027
  Serious: Yes (Hospitalization)
  Sender: FDA-Public Use
  Company Number: 1000013247

PATIENT
  Age: 67 Year
  Sex: Female

DRUGS (9)
  1. CITALOPRAM HYDROBROMIDE [Suspect]
     Dosage: ORAL
     Route: 048
  2. COUMADIN [Suspect]
     Dosage: 9 MG (9 MG,1 IN 1 D),ORAL
     Route: 048
     Dates: start: 19900101
  3. NEXIUM [Suspect]
     Dosage: 40 MG (40 MG,1 IN 1 D),ORAL
     Route: 048
  4. DIGOXIN [Concomitant]
  5. LEXOMIL [Concomitant]
  6. ALDACTONE [Concomitant]
  7. PIASCLEDINE [Concomitant]
  8. LASIX [Concomitant]
  9. TENORMIN [Concomitant]

REACTIONS (2)
  - GASTROINTESTINAL ULCER HAEMORRHAGE [None]
  - INTERNATIONAL NORMALISED RATIO INCREASED [None]
